FAERS Safety Report 12378762 (Version 2)
Quarter: 2016Q3

REPORT INFORMATION
  Report Type: Spontaneous
  Country: IT (occurrence: IT)
  Receive Date: 20160517
  Receipt Date: 20160928
  Transmission Date: 20161109
  Serious: Yes (Hospitalization)
  Sender: FDA-Public Use
  Company Number: IT-ABBVIE-16P-083-1626057-00

PATIENT
  Age: 60 Year
  Sex: Male
  Weight: 70 kg

DRUGS (3)
  1. VIEKIRAX [Suspect]
     Active Substance: OMBITASVIR\PARITAPREVIR\RITONAVIR
     Indication: ANTIVIRAL TREATMENT
     Route: 048
     Dates: start: 20150805, end: 20151028
  2. EXVIERA [Suspect]
     Active Substance: DASABUVIR
     Indication: ANTIVIRAL TREATMENT
     Route: 048
     Dates: start: 20150805, end: 20151028
  3. RIBAVIRIN. [Concomitant]
     Active Substance: RIBAVIRIN
     Indication: ANTIVIRAL TREATMENT
     Route: 048
     Dates: start: 20150805, end: 20160108

REACTIONS (1)
  - Hepatic cancer [Not Recovered/Not Resolved]

NARRATIVE: CASE EVENT DATE: 20160408
